FAERS Safety Report 8923972 (Version 1)
Quarter: 2012Q4

REPORT INFORMATION
  Report Type: 
  Country: BR (occurrence: BR)
  Receive Date: 20121126
  Receipt Date: 20121126
  Transmission Date: 20130627
  Serious: Yes (Life-Threatening, Hospitalization)
  Sender: FDA-Public Use
  Company Number: BR-BAYER-2012-120597

PATIENT
  Age: 51 Year
  Sex: Female
  Weight: 70 kg

DRUGS (1)
  1. GADOVIST [Suspect]
     Indication: CAROTID ANGIOGRAPHY
     Dosage: UNK
     Route: 042
     Dates: start: 20121023, end: 20121023

REACTIONS (10)
  - Dyspnoea [Recovering/Resolving]
  - Laryngeal oedema [Recovering/Resolving]
  - Tachycardia [Recovering/Resolving]
  - Gastrointestinal haemorrhage [Recovering/Resolving]
  - Diarrhoea [Recovering/Resolving]
  - Colitis [Recovering/Resolving]
  - Gastrointestinal inflammation [Recovering/Resolving]
  - Starvation [None]
  - Dizziness [None]
  - Fall [None]
